FAERS Safety Report 7685720-8 (Version None)
Quarter: 2011Q3

REPORT INFORMATION
  Report Type: 
  Country: None (occurrence: None)
  Receive Date: 20110816
  Receipt Date: 20110808
  Transmission Date: 20111222
  Serious: Yes (Other)
  Sender: FDA-Public Use
  Company Number: US-ROCHE-697983

PATIENT
  Sex: Female
  Weight: 68 kg

DRUGS (10)
  1. ACCUTANE [Suspect]
     Indication: ACNE
     Route: 065
     Dates: start: 20040901
  2. SOTRET [Suspect]
     Indication: ACNE
     Route: 065
     Dates: start: 20041201, end: 20050301
  3. AMNESTEEM [Suspect]
     Indication: ACNE
     Route: 065
     Dates: start: 20040927, end: 20041101
  4. TETRACYCLINE [Concomitant]
     Indication: ACNE
  5. METRONIDAZOLE [Concomitant]
  6. NAPROXEN [Concomitant]
  7. ZITHROMAX [Concomitant]
  8. DOXYCYCLINE [Concomitant]
     Indication: ACNE
  9. ALLEGRA D 24 HOUR [Concomitant]
  10. CIPROFLOXACIN [Concomitant]
     Indication: GASTRIC DISORDER

REACTIONS (5)
  - DEPRESSION [None]
  - ANXIETY [None]
  - LIP DRY [None]
  - COLITIS ULCERATIVE [None]
  - INFLAMMATORY BOWEL DISEASE [None]
